FAERS Safety Report 13129813 (Version 1)
Quarter: 2017Q1

REPORT INFORMATION
  Report Type: Spontaneous
  Country: US (occurrence: US)
  Receive Date: 20170118
  Receipt Date: 20170118
  Transmission Date: 20170428
  Serious: Yes (Life-Threatening, Hospitalization, Other)
  Sender: FDA-Public Use
  Company Number: None

PATIENT
  Age: 3 Year
  Sex: Male
  Weight: 13 kg

DRUGS (29)
  1. MIDAZOLAM [Concomitant]
     Active Substance: MIDAZOLAM HYDROCHLORIDE
  2. GANCICLOVIR. [Concomitant]
     Active Substance: GANCICLOVIR
  3. PANTOPRAZOLE [Concomitant]
     Active Substance: PANTOPRAZOLE SODIUM
  4. FUROSEMIDE. [Concomitant]
     Active Substance: FUROSEMIDE
  5. NICARDIPINE [Concomitant]
     Active Substance: NICARDIPINE
  6. FLUTICASONE. [Concomitant]
     Active Substance: FLUTICASONE
  7. MEROPENEM. [Concomitant]
     Active Substance: MEROPENEM
  8. SODIUM BICARBONATE. [Concomitant]
     Active Substance: SODIUM BICARBONATE
  9. ALTEPLASE [Concomitant]
     Active Substance: ALTEPLASE
  10. DEXMEDETOMIDINE. [Concomitant]
     Active Substance: DEXMEDETOMIDINE
  11. SULFAMETHOXAZOLE-TRIMETHOPRIM [Concomitant]
     Active Substance: SULFAMETHOXAZOLE\TRIMETHOPRIM
  12. HYDROMORPHONE [Concomitant]
     Active Substance: HYDROMORPHONE
  13. CISATRACURIUM. [Concomitant]
     Active Substance: CISATRACURIUM
  14. CHLOROTHIAZIDE. [Concomitant]
     Active Substance: CHLOROTHIAZIDE
  15. HEPARIN FLUSH [Concomitant]
     Active Substance: HEPARIN SODIUM
  16. ALBUTEROL. [Concomitant]
     Active Substance: ALBUTEROL
  17. CHLORHEXIDINE [Concomitant]
     Active Substance: CHLORHEXIDINE
  18. POTASSIUM CHLORIDE. [Concomitant]
     Active Substance: POTASSIUM CHLORIDE
  19. ACETAMINOPHEN. [Concomitant]
     Active Substance: ACETAMINOPHEN
  20. SODIUM CHLORIDE. [Concomitant]
     Active Substance: SODIUM CHLORIDE
  21. LORAZEPAM. [Concomitant]
     Active Substance: LORAZEPAM
  22. PAPAVERINE [Concomitant]
     Active Substance: PAPAVERINE
  23. BASILIXIMAB [Suspect]
     Active Substance: BASILIXIMAB
     Indication: PRODUCT USED FOR UNKNOWN INDICATION
     Dosage: ?          OTHER FREQUENCY:ONCE;?
     Route: 042
     Dates: start: 20161016, end: 20161016
  24. METHADONE [Concomitant]
     Active Substance: METHADONE HYDROCHLORIDE
  25. METHYLPREDNISOLONE. [Concomitant]
     Active Substance: METHYLPREDNISOLONE
  26. NYSTATIN. [Concomitant]
     Active Substance: NYSTATIN
  27. ROCURONIUM [Concomitant]
     Active Substance: ROCURONIUM BROMIDE
  28. TACROLIMUS. [Concomitant]
     Active Substance: TACROLIMUS
  29. INSULIN REGULAR [Concomitant]
     Active Substance: INSULIN NOS

REACTIONS (2)
  - Pulmonary oedema [None]
  - Leukaemoid reaction [None]

NARRATIVE: CASE EVENT DATE: 20161016
